FAERS Safety Report 4344650-X (Version None)
Quarter: 2004Q1

REPORT INFORMATION
  Report Type: 
  Country: None (occurrence: None)
  Receive Date: 20040319
  Receipt Date: 20040129
  Transmission Date: 20041129
  Serious: No
  Sender: FDA-Public Use
  Company Number: US-JNJFOC-20040200203

PATIENT
  Age: 25 Year
  Sex: Female
  Weight: 56.6996 kg

DRUGS (2)
  1. ORTHO EVRA [Suspect]
     Indication: CONTRACEPTION
     Dosage: 1 DOSES 3 IN 4 WEEK TRANSDERMAL
     Route: 062
     Dates: start: 20030101
  2. LEVOXYL [Concomitant]

REACTIONS (2)
  - ABNORMAL DREAMS [None]
  - SLEEP DISORDER [None]
